FAERS Safety Report 25982884 (Version 1)
Quarter: 2025Q4

REPORT INFORMATION
  Report Type: Other
  Country: EU (occurrence: EU)
  Receive Date: 20251031
  Receipt Date: 20251031
  Transmission Date: 20260118
  Serious: Yes (Hospitalization)
  Sender: ZYDUS PHARM
  Company Number: None

PATIENT

DRUGS (3)
  1. RISPERIDONE [Interacting]
     Active Substance: RISPERIDONE
     Indication: Product administration error
     Dosage: 2 MILLIGRAM,1 TOTAL
     Route: 048
     Dates: start: 20250903, end: 20250903
  2. LEVOMEPROMAZINE HYDROCHLORIDE [Interacting]
     Active Substance: LEVOMEPROMAZINE HYDROCHLORIDE
     Indication: Product administration error
     Dosage: 50 MILLIGRAM,1 TOTAL
     Route: 048
     Dates: start: 20250903, end: 20250903
  3. TRIHEXYPHENIDYL [Concomitant]
     Active Substance: TRIHEXYPHENIDYL
     Indication: Product used for unknown indication
     Dosage: 5 MILLIGRAM,1 TOTAL
     Route: 048
     Dates: start: 20250903, end: 20250903

REACTIONS (6)
  - Drug interaction [Recovered/Resolved]
  - Asthenia [Recovered/Resolved]
  - Hypotension [Recovered/Resolved]
  - Hypotonia [Recovered/Resolved]
  - Product administration error [Recovered/Resolved]
  - Somnolence [Recovered/Resolved]

NARRATIVE: CASE EVENT DATE: 20250903
